FAERS Safety Report 11110812 (Version 1)
Quarter: 2015Q2

REPORT INFORMATION
  Report Type: Report from Study
  Country: US (occurrence: US)
  Receive Date: 20150513
  Receipt Date: 20150513
  Transmission Date: 20150821
  Serious: Yes (Other)
  Sender: FDA-Public Use
  Company Number: US-SA-2015SA062313

PATIENT
  Age: 47 Year
  Sex: Female

DRUGS (1)
  1. AUBAGIO [Suspect]
     Active Substance: TERIFLUNOMIDE
     Indication: MULTIPLE SCLEROSIS
     Route: 048
     Dates: start: 20141001

REACTIONS (6)
  - Vision blurred [Not Recovered/Not Resolved]
  - Condition aggravated [Unknown]
  - Visual impairment [Not Recovered/Not Resolved]
  - Central nervous system lesion [Unknown]
  - Optic neuritis [Unknown]
  - Alopecia [Unknown]

NARRATIVE: CASE EVENT DATE: 2014
